FAERS Safety Report 11848795 (Version 1)
Quarter: 2015Q4

REPORT INFORMATION
  Report Type: Spontaneous
  Country: US (occurrence: US)
  Receive Date: 20151218
  Receipt Date: 20151218
  Transmission Date: 20160305
  Serious: Yes (Hospitalization)
  Sender: FDA-Public Use
  Company Number: US-BEH-2015056741

PATIENT
  Sex: Female
  Weight: 103 kg

DRUGS (30)
  1. PLAVIX [Concomitant]
     Active Substance: CLOPIDOGREL BISULFATE
  2. VITAMIN E [Concomitant]
     Active Substance: .ALPHA.-TOCOPHEROL
  3. VITAMIN B COMPLEX [Concomitant]
     Active Substance: CYANOCOBALAMIN\DEXPANTHENOL\NIACINAMIDE\PYRIDOXINE HYDROCHLORIDE\RIBOFLAVIN 5^-PHOSPHATE SODIUM\THIAMINE HYDROCHLORIDE\VITAMIN B COMPLEX
  4. ALVESCO [Concomitant]
     Active Substance: CICLESONIDE
  5. ACETAMINOPHEN. [Concomitant]
     Active Substance: ACETAMINOPHEN
  6. MAGNESIUM [Concomitant]
     Active Substance: MAGNESIUM
  7. VITAMIN D [Concomitant]
     Active Substance: CHOLECALCIFEROL
  8. HIZENTRA [Suspect]
     Active Substance: HUMAN IMMUNOGLOBULIN G
     Indication: IMMUNODEFICIENCY COMMON VARIABLE
     Route: 058
     Dates: start: 20150914
  9. HIZENTRA [Suspect]
     Active Substance: HUMAN IMMUNOGLOBULIN G
     Route: 058
     Dates: start: 20150914
  10. LANTUS [Concomitant]
     Active Substance: INSULIN GLARGINE
  11. GEMFIBROZIL. [Concomitant]
     Active Substance: GEMFIBROZIL
  12. HIZENTRA [Suspect]
     Active Substance: HUMAN IMMUNOGLOBULIN G
     Indication: HYPOGAMMAGLOBULINAEMIA
     Route: 058
     Dates: start: 20150914
  13. LOSARTAN-HYDROCHLORTHIAZIDE [Concomitant]
  14. QVAR [Concomitant]
     Active Substance: BECLOMETHASONE DIPROPIONATE
  15. TUMERIC [Concomitant]
     Active Substance: TURMERIC
  16. MINERAL SUPPLEMENTS [Concomitant]
     Active Substance: MINERALS
  17. APIDRA [Concomitant]
     Active Substance: INSULIN GLULISINE
  18. FISH OIL [Concomitant]
     Active Substance: FISH OIL
  19. ZETIA [Concomitant]
     Active Substance: EZETIMIBE
  20. DIPHENHYDRAMINE. [Concomitant]
     Active Substance: DIPHENHYDRAMINE
  21. SYMBICORT [Concomitant]
     Active Substance: BUDESONIDE\FORMOTEROL FUMARATE DIHYDRATE
  22. MULTIVITAMINS [Concomitant]
     Active Substance: VITAMINS
  23. VITAMIN D [Concomitant]
     Active Substance: CHOLECALCIFEROL
  24. COREG [Concomitant]
     Active Substance: CARVEDILOL
  25. LASIX [Concomitant]
     Active Substance: FUROSEMIDE
  26. FIBERCAP [Concomitant]
  27. LIDOCAINE. [Concomitant]
     Active Substance: LIDOCAINE
  28. EPIPEN [Concomitant]
     Active Substance: EPINEPHRINE
  29. BENADRYL [Concomitant]
     Active Substance: DIPHENHYDRAMINE HYDROCHLORIDE
  30. ASPIRIN. [Concomitant]
     Active Substance: ASPIRIN

REACTIONS (1)
  - Enterobacter infection [Not Recovered/Not Resolved]

NARRATIVE: CASE EVENT DATE: 20151202
